FAERS Safety Report 11204178 (Version 1)
Quarter: 2015Q2

REPORT INFORMATION
  Report Type: Report from Study
  Country: AU (occurrence: AU)
  Receive Date: 20150620
  Receipt Date: 20150620
  Transmission Date: 20150821
  Serious: Yes (Death, Life-Threatening, Hospitalization)
  Sender: FDA-Public Use
  Company Number: PHNR2004AU01372

PATIENT
  Age: 51 Year
  Sex: Male

DRUGS (8)
  1. CLOZARIL [Interacting]
     Active Substance: CLOZAPINE
     Indication: SCHIZOPHRENIA
     Dosage: 700 OT, UNK
     Route: 065
     Dates: start: 19990615
  2. CLOZARIL [Interacting]
     Active Substance: CLOZAPINE
     Dosage: 200 MG, QD
     Route: 065
     Dates: start: 20041027, end: 20041102
  3. CLOZARIL [Interacting]
     Active Substance: CLOZAPINE
     Dosage: 100 MG, QD
     Route: 065
     Dates: start: 20041102
  4. DIAZEPAM. [Concomitant]
     Active Substance: DIAZEPAM
     Indication: PRODUCT USED FOR UNKNOWN INDICATION
     Route: 065
  5. DOTHIEPIN [Concomitant]
     Active Substance: DOTHIEPIN\DOTHIEPIN HYDROCHLORIDE
     Indication: PRODUCT USED FOR UNKNOWN INDICATION
     Route: 065
  6. AMISULPRIDE [Concomitant]
     Active Substance: AMISULPRIDE
     Indication: PRODUCT USED FOR UNKNOWN INDICATION
     Route: 065
  7. CLOZARIL [Interacting]
     Active Substance: CLOZAPINE
     Dosage: 50 MG, Q2MO
     Route: 065
     Dates: start: 19990715, end: 20041027
  8. FLUCONAZOLE. [Suspect]
     Active Substance: FLUCONAZOLE
     Indication: PRODUCT USED FOR UNKNOWN INDICATION
     Route: 065

REACTIONS (21)
  - Marrow hyperplasia [Fatal]
  - Platelet count decreased [Fatal]
  - Blood osmolarity increased [Unknown]
  - Blood chloride decreased [Not Recovered/Not Resolved]
  - Globulins decreased [Recovered/Resolved]
  - Lethargy [Fatal]
  - Haemoglobin decreased [Fatal]
  - Blood urea increased [Not Recovered/Not Resolved]
  - Gamma-glutamyltransferase increased [Not Recovered/Not Resolved]
  - White blood cell count decreased [Not Recovered/Not Resolved]
  - Acute lymphocytic leukaemia [Fatal]
  - Blood bilirubin increased [Recovered/Resolved]
  - Antipsychotic drug level increased [Unknown]
  - Drug interaction [Unknown]
  - Blood sodium increased [Recovered/Resolved]
  - Megakaryocytes decreased [Unknown]
  - Dyspnoea [Fatal]
  - Blood potassium increased [Unknown]
  - Protein total decreased [Not Recovered/Not Resolved]
  - Lymphocyte count decreased [Not Recovered/Not Resolved]
  - Blood glucose increased [Unknown]

NARRATIVE: CASE EVENT DATE: 20020222
